FAERS Safety Report 5449363-9 (Version None)
Quarter: 2007Q3

REPORT INFORMATION
  Report Type: 
  Country: None (occurrence: None)
  Receive Date: 20070911
  Receipt Date: 20070830
  Transmission Date: 20080115
  Serious: Yes (Other)
  Sender: FDA-Public Use
  Company Number: GB-PFIZER INC-2007070864

PATIENT
  Sex: Female

DRUGS (1)
  1. CHAMPIX [Suspect]
     Indication: SMOKING CESSATION THERAPY
     Route: 048

REACTIONS (17)
  - ABDOMINAL DISTENSION [None]
  - ABNORMAL DREAMS [None]
  - ASTHENOPIA [None]
  - CIRCADIAN RHYTHM SLEEP DISORDER [None]
  - DISORIENTATION [None]
  - DIZZINESS [None]
  - DRY MOUTH [None]
  - DYSGEUSIA [None]
  - FATIGUE [None]
  - FLATULENCE [None]
  - HYPERTONIA [None]
  - INSOMNIA [None]
  - MENTAL IMPAIRMENT [None]
  - NAUSEA [None]
  - RESTLESSNESS [None]
  - TUNNEL VISION [None]
  - VISUAL ACUITY REDUCED [None]
